FAERS Safety Report 6921638-3 (Version None)
Quarter: 2010Q3

REPORT INFORMATION
  Report Type: 
  Country: None (occurrence: None)
  Receive Date: 20100812
  Receipt Date: 20100804
  Transmission Date: 20110219
  Serious: Yes (Other)
  Sender: FDA-Public Use
  Company Number: US-RB-013107-10

PATIENT
  Age: 51 Year
  Sex: Female

DRUGS (6)
  1. SUBOXONE [Suspect]
     Indication: DRUG DEPENDENCE
     Dosage: 16 MG DAILY
     Route: 060
     Dates: start: 20100709, end: 20100101
  2. SUBOXONE [Suspect]
     Route: 060
     Dates: start: 20100701
  3. TRAZODONE HCL [Suspect]
     Indication: PAIN
     Dosage: UNKNOWN DOSING DETAILS
     Route: 065
     Dates: start: 20100721
  4. TRAZODONE HCL [Suspect]
     Indication: DEPRESSION
     Dosage: UNKNOWN DOSING DETAILS
     Route: 065
     Dates: start: 20100721
  5. TRAZODONE HCL [Concomitant]
     Dosage: UNKNOWN DOSING INFORMATION
     Route: 065
     Dates: start: 20100721
  6. TRAZODONE HCL [Concomitant]
     Dosage: UNKNOWN DOSING INFORMATION
     Route: 065
     Dates: start: 20100721

REACTIONS (17)
  - ARTHRALGIA [None]
  - ASTHENIA [None]
  - DECREASED APPETITE [None]
  - DEPRESSION [None]
  - DRUG DEPENDENCE [None]
  - DRUG WITHDRAWAL SYNDROME [None]
  - EMOTIONAL DISORDER [None]
  - ENERGY INCREASED [None]
  - FATIGUE [None]
  - FEELING ABNORMAL [None]
  - INSOMNIA [None]
  - MEMORY IMPAIRMENT [None]
  - MOOD ALTERED [None]
  - NASOPHARYNGITIS [None]
  - PAIN [None]
  - RESPIRATORY TRACT CONGESTION [None]
  - SUICIDAL IDEATION [None]
